FAERS Safety Report 25745569 (Version 1)
Quarter: 2025Q3

REPORT INFORMATION
  Report Type: Spontaneous
  Country: US (occurrence: US)
  Receive Date: 20250901
  Receipt Date: 20250901
  Transmission Date: 20251021
  Serious: No
  Sender: SANDOZ
  Company Number: US-SANDOZ-SDZ2025US062153

PATIENT
  Sex: Female

DRUGS (1)
  1. ESTRADIOL [Suspect]
     Active Substance: ESTRADIOL
     Indication: Product used for unknown indication
     Dosage: UNK, QW (0.025MG/1D 4TTSM)
     Route: 065

REACTIONS (2)
  - Circumstance or information capable of leading to medication error [Unknown]
  - Product adhesion issue [Unknown]
